FAERS Safety Report 15234878 (Version 1)
Quarter: 2018Q4

REPORT INFORMATION
  Report Type: Spontaneous
  Country: US (occurrence: US)
  Receive Date: 20180803
  Receipt Date: 20180803
  Transmission Date: 20190204
  Serious: No
  Sender: FDA-Public Use
  Company Number: US-LUPIN PHARMACEUTICALS INC.-2018-04519

PATIENT
  Sex: Female

DRUGS (1)
  1. ENSKYCE [Suspect]
     Active Substance: DESOGESTREL\ETHINYL ESTRADIOL
     Indication: MENSTRUATION NORMAL
     Dosage: UNK
     Route: 048

REACTIONS (4)
  - Product quality issue [Unknown]
  - Off label use [Unknown]
  - Menstruation normal [Unknown]
  - Drug ineffective for unapproved indication [Unknown]
